FAERS Safety Report 5675725-0 (Version None)
Quarter: 2008Q1

REPORT INFORMATION
  Report Type: 
  Country: None (occurrence: None)
  Receive Date: 20080321
  Receipt Date: 20080314
  Transmission Date: 20080703
  Serious: Yes (Hospitalization, Other)
  Sender: FDA-Public Use
  Company Number: PHEH2008US02847

PATIENT
  Age: 43 Year
  Sex: Female
  Weight: 106.58 kg

DRUGS (7)
  1. TRILEPTAL [Suspect]
     Dates: start: 20050101, end: 20080205
  2. SYMLIN [Suspect]
     Indication: TYPE 2 DIABETES MELLITUS
     Route: 058
     Dates: start: 20080111, end: 20080205
  3. LYRICA [Concomitant]
     Dates: start: 20070801, end: 20080205
  4. GLUCOPHAGE [Concomitant]
     Dates: start: 19970101
  5. HUMALOG [Concomitant]
  6. LANTUS [Concomitant]
  7. ANTI-ANXIETY MEDICATIONS [Concomitant]

REACTIONS (5)
  - DRUG WITHDRAWAL SYNDROME [None]
  - HEADACHE [None]
  - NAUSEA [None]
  - PAIN IN EXTREMITY [None]
  - WEIGHT DECREASED [None]
